FAERS Safety Report 7064852-1 (Version None)
Quarter: 2010Q4

REPORT INFORMATION
  Report Type: 
  Country: None (occurrence: None)
  Receive Date: 20101027
  Receipt Date: 19880725
  Transmission Date: 20110411
  Serious: Yes (Death)
  Sender: FDA-Public Use
  Company Number: DE-ROCHE-880314748001

PATIENT
  Sex: Female
  Weight: 58 kg

DRUGS (2)
  1. INTERFERON ALFA-2A [Suspect]
     Indication: HAEMANGIOPERICYTOMA
     Route: 058
     Dates: start: 19880405, end: 19880610
  2. CYTOSTATICS [Concomitant]
     Route: 065

REACTIONS (2)
  - HAEMANGIOPERICYTOMA [None]
  - JOINT SWELLING [None]
